FAERS Safety Report 5867268-6 (Version None)
Quarter: 2008Q3

REPORT INFORMATION
  Report Type: 
  Country: None (occurrence: None)
  Receive Date: 20080902
  Receipt Date: 20080825
  Transmission Date: 20090109
  Serious: Yes (Other)
  Sender: FDA-Public Use
  Company Number: JP-AVENTIS-200811891JP

PATIENT
  Age: 12 Year
  Sex: Male
  Weight: 35 kg

DRUGS (7)
  1. ALLEGRA [Suspect]
     Route: 048
     Dates: start: 20080301, end: 20080603
  2. COCARL [Suspect]
     Indication: HEADACHE
     Dosage: DOSE: 1 TBLS
     Route: 048
     Dates: start: 20080604, end: 20080604
  3. PONSTEL [Suspect]
     Indication: HEADACHE
     Dosage: DOSE: 1 P
     Route: 048
     Dates: start: 20080604, end: 20080606
  4. BIOFERMIN R [Concomitant]
     Indication: GASTROENTERITIS
     Dosage: DOSE: 3 TBLS/ADY
     Route: 048
     Dates: start: 20080301, end: 20080101
  5. NAUSELIN [Concomitant]
     Indication: NAUSEA
     Dosage: DOSE: 3 TBLS/DAY
     Route: 048
     Dates: start: 20080604, end: 20080605
  6. MUCOSTA [Concomitant]
     Dates: start: 20080604
  7. SODEMETHIN [Concomitant]
     Route: 041
     Dates: start: 20080604, end: 20080604

REACTIONS (1)
  - PLATELET COUNT DECREASED [None]
